FAERS Safety Report 9005856 (Version 1)
Quarter: 2013Q1

REPORT INFORMATION
  Report Type: Spontaneous
  Country: US (occurrence: US)
  Receive Date: 20130109
  Receipt Date: 20130109
  Transmission Date: 20140127
  Serious: No
  Sender: FDA-Public Use
  Company Number: US-ASTRAZENECA-2012SE94402

PATIENT
  Age: 61 Year
  Sex: Female

DRUGS (3)
  1. CRESTOR [Suspect]
     Indication: BLOOD CHOLESTEROL INCREASED
     Route: 048
     Dates: start: 20121207, end: 20121214
  2. VICTOZIA [Concomitant]
     Indication: DIABETES MELLITUS
  3. GLYPEZIDE [Concomitant]
     Indication: DIABETES MELLITUS

REACTIONS (4)
  - Pain [Unknown]
  - Blood triglycerides increased [Unknown]
  - Diabetes mellitus [Unknown]
  - Headache [Unknown]
